FAERS Safety Report 6485754-5 (Version None)
Quarter: 2009Q4

REPORT INFORMATION
  Report Type: 
  Country: None (occurrence: None)
  Receive Date: 20091204
  Receipt Date: 20091125
  Transmission Date: 20100525
  Serious: Yes (Other)
  Sender: FDA-Public Use
  Company Number: 2009SP038941

PATIENT
  Age: 54 Year
  Sex: Female
  Weight: 90.7194 kg

DRUGS (4)
  1. PEG-INTRON [Suspect]
     Indication: HEPATITIS C
     Dosage: SC
     Route: 058
     Dates: start: 20091105
  2. RIBAVIRIN [Suspect]
     Indication: HEPATITIS C
     Dosage: PO
     Route: 048
     Dates: start: 20091105
  3. PRISTIQ [Concomitant]
  4. HYDROXYZINE [Concomitant]

REACTIONS (6)
  - DIARRHOEA [None]
  - MENTAL IMPAIRMENT [None]
  - NAUSEA [None]
  - PARANOIA [None]
  - VOMITING [None]
  - WEIGHT DECREASED [None]
